FAERS Safety Report 11757680 (Version 1)
Quarter: 2015Q4

REPORT INFORMATION
  Report Type: Report from Study
  Country: US (occurrence: US)
  Receive Date: 20151120
  Receipt Date: 20151120
  Transmission Date: 20160304
  Serious: Yes (Other)
  Sender: FDA-Public Use
  Company Number: US-BIOGENIDEC-2015BI151923

PATIENT
  Age: 54 Year
  Sex: Female

DRUGS (13)
  1. KLONOPIN [Concomitant]
     Active Substance: CLONAZEPAM
  2. PROTONIX [Concomitant]
     Active Substance: PANTOPRAZOLE SODIUM
     Indication: HIATUS HERNIA
  3. CALCIUM D [Concomitant]
     Active Substance: CALCIUM\VITAMIN D
  4. VERAPAMIL [Concomitant]
     Active Substance: VERAPAMIL HYDROCHLORIDE
  5. VITAMIN B12 [Concomitant]
     Active Substance: CYANOCOBALAMIN
  6. CELEXA [Concomitant]
     Active Substance: CITALOPRAM HYDROBROMIDE
  7. TUMS [Concomitant]
     Active Substance: CALCIUM CARBONATE
     Indication: HIATUS HERNIA
  8. TECFIDERA [Suspect]
     Active Substance: DIMETHYL FUMARATE
     Indication: MULTIPLE SCLEROSIS
     Route: 048
  9. ZOMIG [Concomitant]
     Active Substance: ZOLMITRIPTAN
  10. LISINOPRIL. [Concomitant]
     Active Substance: LISINOPRIL
  11. FOSAMAX [Concomitant]
     Active Substance: ALENDRONATE SODIUM
  12. MULTIVITAMIN [Concomitant]
     Active Substance: VITAMINS
  13. HYDROCODONE [Concomitant]
     Active Substance: HYDROCODONE

REACTIONS (1)
  - Chest pain [Recovered/Resolved]

NARRATIVE: CASE EVENT DATE: 20151113
